FAERS Safety Report 14001372 (Version 1)
Quarter: 2017Q3

REPORT INFORMATION
  Report Type: Spontaneous
  Country: US (occurrence: US)
  Receive Date: 20170922
  Receipt Date: 20170922
  Transmission Date: 20171128
  Serious: Yes (Hospitalization)
  Sender: FDA-Public Use
  Company Number: US-LPDUSPRD-20160962

PATIENT
  Age: 70 Year
  Sex: Female

DRUGS (1)
  1. BETAMETHASONE SODIUM PHOSPHATE AND BETAMETHASONE ACETATE INJ SUSP, USP [Suspect]
     Active Substance: BETAMETHASONE ACETATE\BETAMETHASONE SODIUM PHOSPHATE
     Dosage: DOSE NOT PROVIDED
     Route: 030
     Dates: start: 20160926, end: 20160926

REACTIONS (3)
  - Sepsis [Not Recovered/Not Resolved]
  - Meningitis bacterial [Unknown]
  - Neck pain [Unknown]

NARRATIVE: CASE EVENT DATE: 20161021
